FAERS Safety Report 6206639-5 (Version None)
Quarter: 2009Q2

REPORT INFORMATION
  Report Type: 
  Country: None (occurrence: None)
  Receive Date: 20090528
  Receipt Date: 20090429
  Transmission Date: 20091009
  Serious: Yes (Death, Congenital Anomaly)
  Sender: FDA-Public Use
  Company Number: DZ-NOVOPROD-286949

PATIENT

DRUGS (5)
  1. NOVOLOG [Suspect]
     Indication: INSULIN-REQUIRING TYPE 2 DIABETES MELLITUS
     Dosage: 8 IU AT BREAKFAST AND 10 IU AT LUNCH
     Route: 064
     Dates: start: 20090127
  2. METFORMIN HCL [Concomitant]
     Dosage: 2550 MG, QD
     Dates: start: 20090101
  3. NPH INSULIN [Concomitant]
     Dosage: 10 IU, AT BEDTIME
     Dates: start: 20090101
  4. ASPIRIN [Concomitant]
     Dosage: 100 MG, QD
     Dates: start: 20090101
  5. LEVOTHYROX [Concomitant]
     Indication: GOITRE

REACTIONS (6)
  - ASCITES [None]
  - HEART DISEASE CONGENITAL [None]
  - INTRA-UTERINE DEATH [None]
  - MATERNAL DRUGS AFFECTING FOETUS [None]
  - MULTIPLE CONGENITAL ABNORMALITIES [None]
  - PULMONARY MALFORMATION [None]
